FAERS Safety Report 6403751-2 (Version None)
Quarter: 2009Q4

REPORT INFORMATION
  Report Type: 
  Country: None (occurrence: None)
  Receive Date: 20091015
  Receipt Date: 20091015
  Transmission Date: 20100525
  Serious: Yes (Life-Threatening)
  Sender: FDA-Public Use
  Company Number: None

PATIENT
  Age: 68 Year
  Sex: Female
  Weight: 67.1324 kg

DRUGS (1)
  1. ALBUTEROL SULFATE [Suspect]
     Dosage: 2 PUFFS - INHALED EVERY 4-6 HRS

REACTIONS (2)
  - ABASIA [None]
  - DRUG EFFECT DECREASED [None]
